FAERS Safety Report 11435298 (Version 1)
Quarter: 2015Q3

REPORT INFORMATION
  Report Type: Spontaneous
  Country: US (occurrence: US)
  Receive Date: 20150831
  Receipt Date: 20150831
  Transmission Date: 20151125
  Serious: No
  Sender: FDA-Public Use
  Company Number: US-ROXANE LABORATORIES, INC.-2015-RO-01481RO

PATIENT
  Sex: Female

DRUGS (2)
  1. PREDNISONE CREAM [Suspect]
     Active Substance: PREDNISONE
     Indication: RASH PAPULAR
     Route: 061
     Dates: start: 20150724, end: 20150727
  2. PREDNISONE. [Suspect]
     Active Substance: PREDNISONE
     Indication: RASH PAPULAR
     Route: 065
     Dates: start: 20150727

REACTIONS (3)
  - Arthralgia [Not Recovered/Not Resolved]
  - Oedema peripheral [Not Recovered/Not Resolved]
  - Headache [Not Recovered/Not Resolved]

NARRATIVE: CASE EVENT DATE: 20150725
